FAERS Safety Report 10469639 (Version 1)
Quarter: 2014Q3

REPORT INFORMATION
  Report Type: Spontaneous
  Country: US (occurrence: US)
  Receive Date: 20140923
  Receipt Date: 20140923
  Transmission Date: 20150326
  Serious: No
  Sender: FDA-Public Use
  Company Number: US-BAYER-2014-141345

PATIENT
  Age: 48 Year
  Sex: Female
  Weight: 57.6 kg

DRUGS (2)
  1. REMODULIN [Suspect]
     Active Substance: TREPROSTINIL
     Indication: COR PULMONALE CHRONIC
     Dosage: 0.042 ?G/KG/MIN
     Route: 058
     Dates: start: 20140815
  2. ADEMPAS [Suspect]
     Active Substance: RIOCIGUAT
     Indication: PRODUCT USED FOR UNKNOWN INDICATION
     Dosage: UNK
     Route: 058

REACTIONS (4)
  - Headache [None]
  - Diarrhoea [None]
  - Hypotension [None]
  - Vomiting [None]

NARRATIVE: CASE EVENT DATE: 2014
